FAERS Safety Report 14277531 (Version 2)
Quarter: 2018Q1

REPORT INFORMATION
  Report Type: Other
  Country: JP (occurrence: JP)
  Receive Date: 20171212
  Receipt Date: 20180117
  Transmission Date: 20180508
  Serious: Yes (Other)
  Sender: FDA-Public Use
  Company Number: JP-DSJP-DSJ-2017-157201

PATIENT

DRUGS (6)
  1. BELSOMRA [Concomitant]
     Active Substance: SUVOREXANT
     Dosage: UNK
     Route: 065
  2. CELECOX [Concomitant]
     Active Substance: CELECOXIB
     Dosage: UNK
     Route: 065
     Dates: start: 20171111
  3. REBAMIPIDE [Concomitant]
     Active Substance: REBAMIPIDE
     Dosage: UNK
     Route: 065
     Dates: start: 20171111
  4. FERROSTEC [Concomitant]
     Active Substance: SODIUM FERROUS CITRATE
     Dosage: UNK
     Route: 065
     Dates: start: 20171116
  5. CEFCAPENE [Concomitant]
     Active Substance: CEFCAPENE
     Dosage: UNK
     Route: 065
     Dates: start: 20171115
  6. LIXIANA TABLETS 15MG [Suspect]
     Active Substance: EDOXABAN TOSYLATE
     Indication: HIP ARTHROPLASTY
     Dosage: 30 MG, QD
     Route: 048
     Dates: start: 20171115, end: 20171122

REACTIONS (1)
  - Liver disorder [Recovered/Resolved]

NARRATIVE: CASE EVENT DATE: 20171120
